FAERS Safety Report 8444314-7 (Version None)
Quarter: 2012Q2

REPORT INFORMATION
  Report Type: 
  Country: None (occurrence: None)
  Receive Date: 20120618
  Receipt Date: 20120608
  Transmission Date: 20120825
  Serious: Yes (Hospitalization)
  Sender: FDA-Public Use
  Company Number: BR-ASTRAZENECA-2012SE39244

PATIENT
  Age: 71 Year
  Sex: Female
  Weight: 51 kg

DRUGS (6)
  1. CLOPIDOGREL [Concomitant]
  2. PANTOPRAZOLE [Concomitant]
     Indication: PROPHYLAXIS
  3. ATACAND HCT [Suspect]
     Indication: HYPERTENSION
     Dosage: 16/12.5 MG ONCE DAILY
     Route: 048
     Dates: end: 20120501
  4. METOPROLOL SUCCINATE [Suspect]
     Indication: HYPERTENSION
     Route: 048
  5. ISOSORBIDE MONONITRATE [Concomitant]
     Route: 048
  6. SOMALGIN [Concomitant]
     Route: 048
     Dates: start: 20000101, end: 20120501

REACTIONS (2)
  - PLEURAL EFFUSION [None]
  - INTENTIONAL DRUG MISUSE [None]
